FAERS Safety Report 18207536 (Version 1)
Quarter: 2020Q3

REPORT INFORMATION
  Report Type: Spontaneous
  Country: US (occurrence: US)
  Receive Date: 20200828
  Receipt Date: 20200828
  Transmission Date: 20201103
  Serious: No
  Sender: FDA-Public Use
  Company Number: None

PATIENT
  Age: 39 Year
  Sex: Female
  Weight: 148.05 kg

DRUGS (8)
  1. VITAMIN C [Concomitant]
     Active Substance: ASCORBIC ACID
  2. POSTPARTUM [Concomitant]
  3. MAGNESIUM GLUCONATE [Concomitant]
     Active Substance: MAGNESIUM GLUCONATE
  4. MONISTAT 1 COMBINATION PACK [Suspect]
     Active Substance: MICONAZOLE NITRATE
     Indication: FUNGAL INFECTION
     Dosage: ?          OTHER STRENGTH:1200MG/2%;QUANTITY:1 OVULE;?
     Route: 067
     Dates: start: 20200826, end: 20200826
  5. AZO CRANBERRY [Concomitant]
     Active Substance: DIETARY SUPPLEMENT
  6. VITAMIN D [Concomitant]
     Active Substance: VITAMIN D NOS
  7. ASPIRIN 81MG [Concomitant]
     Active Substance: ASPIRIN
  8. B?12 INJECTIONS [Concomitant]

REACTIONS (4)
  - Blood pressure increased [None]
  - Application site swelling [None]
  - Infertility [None]
  - Application site burn [None]

NARRATIVE: CASE EVENT DATE: 20200827
